FAERS Safety Report 10404352 (Version 1)
Quarter: 2014Q1

REPORT INFORMATION
  Report Type: Spontaneous
  Country: US (occurrence: None)
  Receive Date: 20140214
  Receipt Date: 20140214
  Transmission Date: 20141002
  Serious: No
  Sender: FDA-Public Use
  Company Number: A-US2013-92684

PATIENT
  Age: 78 Year
  Sex: Male

DRUGS (4)
  1. OPSUMIT (MACITENTAN) [Suspect]
     Indication: PULMONARY ARTERIAL HYPERTENSION
     Route: 048
     Dates: start: 20131126
  2. ATENOLOL [Concomitant]
  3. PROAIR HFA (SALBUTAMOL SULFATE) [Concomitant]
  4. ALBUTEROL (SALBUTAMOL SULFATE) [Concomitant]

REACTIONS (1)
  - Dyspnoea [None]
